FAERS Safety Report 5869628-6 (Version None)
Quarter: 2008Q3

REPORT INFORMATION
  Report Type: 
  Country: None (occurrence: None)
  Receive Date: 20080904
  Receipt Date: 20080215
  Transmission Date: 20090109
  Serious: No
  Sender: FDA-Public Use
  Company Number: US-KINGPHARMUSA00001-K200800211

PATIENT

DRUGS (5)
  1. CYTOMEL [Suspect]
     Indication: HYPOTHYROIDISM
     Dosage: LESS THAN 5 MCG
     Route: 048
  2. CYTOMEL [Suspect]
     Dosage: 22.5 MCG
     Route: 048
  3. CYTOMEL [Suspect]
     Dosage: 7.5 MCG DAILY (5 MINIDOSES OF 1/4 TO 3/8 TABLET)
     Route: 048
  4. LEVOXYL [Suspect]
     Indication: HYPOTHYROIDISM
     Dosage: 88 MCG, QD
     Route: 048
     Dates: start: 20040201
  5. HORMONES NOS [Concomitant]

REACTIONS (3)
  - HEADACHE [None]
  - MIGRAINE [None]
  - TRI-IODOTHYRONINE DECREASED [None]
